FAERS Safety Report 5848155-6 (Version None)
Quarter: 2008Q3

REPORT INFORMATION
  Report Type: 
  Country: None (occurrence: None)
  Receive Date: 20080818
  Receipt Date: 20080812
  Transmission Date: 20090109
  Serious: Yes (Hospitalization)
  Sender: FDA-Public Use
  Company Number: A0742210A

PATIENT
  Age: 55 Year
  Sex: Female

DRUGS (6)
  1. PAXIL [Suspect]
     Indication: BIPOLAR DISORDER
     Dosage: 20MG TWICE PER DAY
     Route: 048
  2. PAROXETINE HCL [Suspect]
     Indication: BIPOLAR DISORDER
     Dosage: 20MG TWICE PER DAY
     Route: 048
  3. DEPAKOTE [Concomitant]
  4. ATIVAN [Concomitant]
  5. KLONOPIN [Concomitant]
  6. METHYLPHENIDATE HCL [Concomitant]

REACTIONS (11)
  - AGGRESSION [None]
  - CRYING [None]
  - EMOTIONAL DISORDER [None]
  - FEAR [None]
  - INTENTIONAL SELF-INJURY [None]
  - NAUSEA [None]
  - SUICIDAL IDEATION [None]
  - SUICIDE ATTEMPT [None]
  - THERAPEUTIC RESPONSE UNEXPECTED WITH DRUG SUBSTITUTION [None]
  - TREMOR [None]
  - WITHDRAWAL SYNDROME [None]
